FAERS Safety Report 9266970 (Version 1)
Quarter: 2013Q2

REPORT INFORMATION
  Report Type: Spontaneous
  Country: US (occurrence: US)
  Receive Date: 20130502
  Receipt Date: 20130502
  Transmission Date: 20140414
  Serious: No
  Sender: FDA-Public Use
  Company Number: US-PFIZER INC-2013130364

PATIENT
  Age: 69 Year
  Sex: Female

DRUGS (1)
  1. BOSULIF [Suspect]
     Dosage: 500 MG, UNK
     Dates: start: 20130105

REACTIONS (1)
  - Drug intolerance [Unknown]
